FAERS Safety Report 25640548 (Version 1)
Quarter: 2025Q3

REPORT INFORMATION
  Report Type: Spontaneous
  Country: US (occurrence: US)
  Receive Date: 20250804
  Receipt Date: 20250804
  Transmission Date: 20251020
  Serious: Yes (Life-Threatening, Hospitalization, Other)
  Sender: ALEMBIC
  Company Number: US-MLMSERVICE-20250711-PI573942-00050-1

PATIENT

DRUGS (8)
  1. VENLAFAXINE [Interacting]
     Active Substance: VENLAFAXINE HYDROCHLORIDE
     Indication: Bipolar disorder
     Route: 065
  2. BREXPIPRAZOLE [Interacting]
     Active Substance: BREXPIPRAZOLE
     Indication: Bipolar disorder
     Route: 065
  3. AMLODIPINE [Interacting]
     Active Substance: AMLODIPINE BESYLATE
     Indication: Hypertension
     Route: 065
  4. LISINOPRIL [Interacting]
     Active Substance: LISINOPRIL
     Indication: Hypertension
     Route: 065
  5. CARIPRAZINE [Interacting]
     Active Substance: CARIPRAZINE
     Indication: Bipolar disorder
     Route: 065
  6. TRAZODONE HCL [Interacting]
     Active Substance: TRAZODONE HYDROCHLORIDE
     Indication: Bipolar disorder
     Route: 065
  7. HYDROXYZINE [Interacting]
     Active Substance: HYDROXYZINE HYDROCHLORIDE
     Indication: Anxiety
     Route: 065
  8. KETAMINE [Interacting]
     Active Substance: KETAMINE
     Indication: Sedation
     Route: 065

REACTIONS (12)
  - Intestinal ischaemia [Unknown]
  - Drug interaction [Unknown]
  - Distributive shock [Unknown]
  - Respiratory distress [Unknown]
  - Hypervolaemia [Unknown]
  - Encephalopathy [Unknown]
  - Serotonin syndrome [Recovered/Resolved]
  - Pyrexia [Unknown]
  - Clonus [Unknown]
  - Hyperreflexia [Unknown]
  - Angioedema [Unknown]
  - Stridor [Unknown]
